FAERS Safety Report 6902070-5 (Version None)
Quarter: 2010Q3

REPORT INFORMATION
  Report Type: 
  Country: None (occurrence: None)
  Receive Date: 20100803
  Receipt Date: 20080421
  Transmission Date: 20110219
  Serious: No
  Sender: FDA-Public Use
  Company Number: US-PFIZER INC-2008033848

PATIENT
  Sex: Female
  Weight: 89.8 kg

DRUGS (6)
  1. LYRICA [Suspect]
     Indication: FIBROMYALGIA
     Dates: start: 20080101, end: 20080301
  2. LYRICA [Suspect]
     Indication: HYPOAESTHESIA
  3. LYRICA [Suspect]
     Indication: PARAESTHESIA
  4. HYDROCODONE BITARTRATE [Concomitant]
  5. DRUG, UNSPECIFIED [Concomitant]
  6. PALIPERIDONE [Concomitant]

REACTIONS (7)
  - ABDOMINAL DISCOMFORT [None]
  - ABDOMINAL PAIN UPPER [None]
  - ANXIETY [None]
  - MYALGIA [None]
  - PAIN [None]
  - SLEEP DISORDER [None]
  - VISION BLURRED [None]
